FAERS Safety Report 5204931-4 (Version None)
Quarter: 2007Q1

REPORT INFORMATION
  Report Type: 
  Country: None (occurrence: None)
  Receive Date: 20070110
  Receipt Date: 20060907
  Transmission Date: 20070707
  Serious: No
  Sender: FDA-Public Use
  Company Number: US-BRISTOL-MYERS SQUIBB COMPANY-13501192

PATIENT
  Age: 14 Year
  Sex: Male

DRUGS (5)
  1. ABILIFY [Suspect]
     Indication: AFFECTIVE DISORDER
     Dates: start: 20051201
  2. ABILIFY [Suspect]
     Indication: ATTENTION DEFICIT/HYPERACTIVITY DISORDER
     Dates: start: 20051201
  3. DEPAKOTE [Concomitant]
  4. CONCERTA [Concomitant]
  5. RITALIN [Concomitant]

REACTIONS (2)
  - MUSCLE TWITCHING [None]
  - TONGUE DISORDER [None]
